FAERS Safety Report 12674410 (Version 1)
Quarter: 2016Q3

REPORT INFORMATION
  Report Type: Spontaneous
  Country: US (occurrence: US)
  Receive Date: 20160822
  Receipt Date: 20160822
  Transmission Date: 20161109
  Serious: Yes (Hospitalization)
  Sender: FDA-Public Use
  Company Number: US-BEH-2015056279

PATIENT
  Age: 84 Year
  Sex: Male
  Weight: 122.47 kg

DRUGS (35)
  1. SINGULAIR [Concomitant]
     Active Substance: MONTELUKAST SODIUM
  2. PREDNISONE. [Concomitant]
     Active Substance: PREDNISONE
  3. LYRICA [Concomitant]
     Active Substance: PREGABALIN
  4. THEOPHYLLINE [Concomitant]
     Active Substance: THEOPHYLLINE ANHYDROUS
  5. RANITIDINE. [Concomitant]
     Active Substance: RANITIDINE
  6. EPIPEN [Concomitant]
     Active Substance: EPINEPHRINE
  7. FISH OIL [Concomitant]
     Active Substance: FISH OIL
  8. SPIRONOLACTONE. [Concomitant]
     Active Substance: SPIRONOLACTONE
  9. SODIUM CHLORIDE. [Concomitant]
     Active Substance: SODIUM CHLORIDE
  10. DIPHENHYDRAMINE. [Concomitant]
     Active Substance: DIPHENHYDRAMINE
  11. CELEBREX [Concomitant]
     Active Substance: CELECOXIB
  12. CYANOCOBALAMIN. [Concomitant]
     Active Substance: CYANOCOBALAMIN
  13. MONTELUKAST SODIUM. [Concomitant]
     Active Substance: MONTELUKAST SODIUM
  14. ASPIRIN. [Concomitant]
     Active Substance: ASPIRIN
  15. ULORIC [Concomitant]
     Active Substance: FEBUXOSTAT
  16. TRAMADOL. [Concomitant]
     Active Substance: TRAMADOL
  17. MELOXICAM. [Concomitant]
     Active Substance: MELOXICAM
  18. FOLIC ACID. [Concomitant]
     Active Substance: FOLIC ACID
  19. FLOMAX [Concomitant]
     Active Substance: TAMSULOSIN HYDROCHLORIDE
  20. AZOR [Concomitant]
     Active Substance: AMLODIPINE BESYLATE\OLMESARTAN MEDOXOMIL
  21. ZEMAIRA [Suspect]
     Active Substance: .ALPHA.1-PROTEINASE INHIBITOR HUMAN
     Indication: ALPHA-1 ANTI-TRYPSIN DEFICIENCY
     Dosage: 1005 MG/VL
     Route: 042
  22. CARVEDILOL. [Concomitant]
     Active Substance: CARVEDILOL
  23. LMX [Concomitant]
     Active Substance: LIDOCAINE
  24. DOCUSATE CALCIUM. [Concomitant]
     Active Substance: DOCUSATE CALCIUM
  25. VITAMIN D [Concomitant]
     Active Substance: CHOLECALCIFEROL
  26. MUCINEX [Concomitant]
     Active Substance: GUAIFENESIN
  27. FUROSEMIDE. [Concomitant]
     Active Substance: FUROSEMIDE
  28. SOTALOL. [Concomitant]
     Active Substance: SOTALOL
  29. MULTIPLE VITAMINS [Concomitant]
     Active Substance: VITAMINS
  30. OMEPRAZOLE. [Concomitant]
     Active Substance: OMEPRAZOLE
  31. LYRICA [Concomitant]
     Active Substance: PREGABALIN
  32. OXYGEN. [Concomitant]
     Active Substance: OXYGEN
  33. ADVAIR HFA [Concomitant]
     Active Substance: FLUTICASONE PROPIONATE\SALMETEROL XINAFOATE
  34. LISINOPRIL. [Concomitant]
     Active Substance: LISINOPRIL
  35. PROTONIX [Concomitant]
     Active Substance: PANTOPRAZOLE SODIUM

REACTIONS (1)
  - Dyspnoea [Recovered/Resolved]

NARRATIVE: CASE EVENT DATE: 20151118
